FAERS Safety Report 20853288 (Version 1)
Quarter: 2022Q2

REPORT INFORMATION
  Report Type: Spontaneous
  Country: US (occurrence: US)
  Receive Date: 20220520
  Receipt Date: 20220520
  Transmission Date: 20220721
  Serious: Yes (Hospitalization, Other)
  Sender: FDA-Public Use
  Company Number: US-Accord-263650

PATIENT
  Age: 87 Year
  Sex: Male

DRUGS (5)
  1. AZACITIDINE [Suspect]
     Active Substance: AZACITIDINE
     Indication: Acute myeloid leukaemia
     Dosage: 75 MG/M2 ON DAYS 1-7
     Route: 042
  2. VENETOCLAX [Suspect]
     Active Substance: VENETOCLAX
     Indication: Acute myeloid leukaemia
     Dosage: 100 MG ON DAY 1 TO 400 MG BY DAY 3 AND WAS CONTINUED ON 400 MG DAILY THROUGH DAY 21
  3. GRANULOCYTE COLONY-STIMULATING FACTOR NOS [Concomitant]
     Active Substance: GRANULOCYTE COLONY-STIMULATING FACTOR NOS
  4. HYDROXYUREA [Concomitant]
     Active Substance: HYDROXYUREA
  5. MICAFUNGIN [Concomitant]
     Active Substance: MICAFUNGIN
     Indication: Prophylaxis

REACTIONS (5)
  - Febrile neutropenia [Unknown]
  - Leukocytosis [Unknown]
  - Atrial fibrillation [Unknown]
  - Phlebitis [Unknown]
  - Cytopenia [Unknown]
